FAERS Safety Report 7149661-7 (Version None)
Quarter: 2010Q4

REPORT INFORMATION
  Report Type: 
  Country: None (occurrence: None)
  Receive Date: 20101209
  Receipt Date: 20101129
  Transmission Date: 20110411
  Serious: Yes (Hospitalization)
  Sender: FDA-Public Use
  Company Number: FR-MERCK-1011FRA00127

PATIENT
  Age: 56 Year
  Sex: Male

DRUGS (10)
  1. EMEND [Suspect]
     Route: 048
     Dates: start: 20100823
  2. FLUOROURACIL [Suspect]
     Indication: HYPOPHARYNGEAL CANCER
     Route: 042
     Dates: start: 20100823
  3. CISPLATIN [Suspect]
     Indication: HYPOPHARYNGEAL CANCER
     Route: 042
     Dates: start: 20100823
  4. CETUXIMAB [Suspect]
     Route: 042
     Dates: start: 20100823
  5. ONDANSETRON HYDROCHLORIDE [Suspect]
     Route: 065
     Dates: start: 20100823
  6. METHYLPREDNISOLONE SODIUM SUCCINATE [Suspect]
     Route: 065
  7. DEXCHLORPHENIRAMINE MALEATE [Suspect]
     Route: 065
  8. DESLORATADINE [Suspect]
     Indication: RASH
     Route: 065
  9. METOCLOPRAMIDE HYDROCHLORIDE [Suspect]
     Route: 065
  10. CILENGITIDE [Concomitant]
     Indication: HYPOPHARYNGEAL CANCER
     Route: 065

REACTIONS (2)
  - HEPATITIS ACUTE [None]
  - THROMBOCYTOPENIA [None]
